FAERS Safety Report 11094677 (Version 1)
Quarter: 2015Q2

REPORT INFORMATION
  Report Type: Spontaneous
  Country: US (occurrence: US)
  Receive Date: 20150506
  Receipt Date: 20150506
  Transmission Date: 20150821
  Serious: Yes (Other)
  Sender: FDA-Public Use
  Company Number: US-BAYER-2015-186245

PATIENT
  Age: 30 Year
  Sex: Female

DRUGS (2)
  1. BETASERON [Suspect]
     Active Substance: INTERFERON BETA-1B
     Indication: MULTIPLE SCLEROSIS
     Dosage: 0.3 MG, QOD
     Dates: start: 20110820
  2. AMPYRA [Suspect]
     Active Substance: DALFAMPRIDINE

REACTIONS (2)
  - Urinary tract infection [None]
  - Noninfective oophoritis [None]
